FAERS Safety Report 7184012-3 (Version None)
Quarter: 2010Q4

REPORT INFORMATION
  Report Type: 
  Country: None (occurrence: None)
  Receive Date: 20101222
  Receipt Date: 20101213
  Transmission Date: 20110411
  Serious: Yes (Hospitalization)
  Sender: FDA-Public Use
  Company Number: US-GILEAD-2010-0034379

PATIENT
  Sex: Female
  Weight: 40 kg

DRUGS (20)
  1. AZTREONAM [Suspect]
     Indication: CYSTIC FIBROSIS
     Route: 055
     Dates: start: 20101203
  2. PREDNISONE [Concomitant]
  3. SODIUM CHLORIDE [Concomitant]
  4. FERROUS SULFATE [Concomitant]
  5. PANCRELIPASE [Concomitant]
  6. PHYTONADIONE [Concomitant]
  7. PULMOZYME [Concomitant]
  8. HUMALOG [Concomitant]
  9. GLUCAGON [Concomitant]
  10. FLUTICASONE PROPIONATE [Concomitant]
  11. TRIAMCINOLONE [Concomitant]
  12. ALBUTEROL [Concomitant]
  13. MULTI-VITAMINS [Concomitant]
  14. CELECOXIB [Concomitant]
  15. CETRIZINE [Concomitant]
  16. INTAL [Concomitant]
  17. METOCLOPRAMIDE [Concomitant]
  18. MONTELUKAST [Concomitant]
  19. OMEPRAZOLE [Concomitant]
  20. COLISTIMETHATE SODIUM [Concomitant]

REACTIONS (1)
  - PNEUMOTHORAX [None]
